FAERS Safety Report 12249770 (Version 12)
Quarter: 2017Q3

REPORT INFORMATION
  Report Type: Spontaneous
  Country: US (occurrence: US)
  Receive Date: 20160408
  Receipt Date: 20170816
  Transmission Date: 20171127
  Serious: Yes (Death, Hospitalization)
  Sender: FDA-Public Use
  Company Number: US-ACTELION PHARMACEUTICALS US, INC.-A-NJ2016-134052

PATIENT
  Age: 57 Year
  Sex: Female
  Weight: 81.63 kg

DRUGS (4)
  1. OPSUMIT [Suspect]
     Active Substance: MACITENTAN
     Dosage: UNK
     Route: 048
  2. OPSUMIT [Suspect]
     Active Substance: MACITENTAN
     Indication: PULMONARY ARTERIAL HYPERTENSION
     Dosage: 10 MG, QD
     Route: 048
     Dates: start: 20151210
  3. OXYGEN. [Concomitant]
     Active Substance: OXYGEN
  4. REVATIO [Concomitant]
     Active Substance: SILDENAFIL CITRATE

REACTIONS (19)
  - Panic attack [Unknown]
  - Blood potassium decreased [Unknown]
  - Dyspnoea [Unknown]
  - Oxygen consumption increased [Unknown]
  - Upper-airway cough syndrome [Unknown]
  - Death [Fatal]
  - Tooth fracture [Unknown]
  - Productive cough [Unknown]
  - Hypoaesthesia [Unknown]
  - Feeling abnormal [Unknown]
  - Muscular weakness [Unknown]
  - Gait disturbance [Unknown]
  - Cough [Unknown]
  - Toothache [Unknown]
  - Malaise [Unknown]
  - Bronchitis [Unknown]
  - Epistaxis [Unknown]
  - Drug dose omission [Unknown]
  - Therapy non-responder [Unknown]

NARRATIVE: CASE EVENT DATE: 201702
